FAERS Safety Report 23102162 (Version 1)
Quarter: 2023Q4

REPORT INFORMATION
  Report Type: Report from Study
  Country: US (occurrence: US)
  Receive Date: 20231025
  Receipt Date: 20231025
  Transmission Date: 20240110
  Serious: Yes (Hospitalization)
  Sender: FDA-Public Use
  Company Number: US-ABBVIE-5313624

PATIENT
  Sex: Male

DRUGS (5)
  1. SKYRIZI [Suspect]
     Active Substance: RISANKIZUMAB-RZAA
     Indication: Crohn^s disease
     Dosage: WEEK 12?STRENGTH: 360MG/2.4ML ?PREFILLED CARTRIDGE
     Route: 058
  2. SKYRIZI [Suspect]
     Active Substance: RISANKIZUMAB-RZAA
     Dosage: STRENGTH: 360MG/2.4ML ?PREFILLED CARTRIDGE
     Route: 058
  3. SKYRIZI [Suspect]
     Active Substance: RISANKIZUMAB-RZAA
     Indication: Crohn^s disease
     Dosage: WEEK 0?600 MG/10 ML ?FORM STRENGTH: 600 MILLIGRAM
     Route: 042
     Dates: start: 202302, end: 202302
  4. SKYRIZI [Suspect]
     Active Substance: RISANKIZUMAB-RZAA
     Indication: Crohn^s disease
     Dosage: WEEK 4?600 MG/10 ML ?FORM STRENGTH: 600 MILLIGRAM
     Route: 042
     Dates: start: 2023, end: 2023
  5. SKYRIZI [Suspect]
     Active Substance: RISANKIZUMAB-RZAA
     Indication: Crohn^s disease
     Dosage: WEEK 8?600 MG/10 ML ?FORM STRENGTH: 600 MILLIGRAM
     Route: 042
     Dates: start: 2023, end: 2023

REACTIONS (3)
  - Foot deformity [Unknown]
  - Gastrointestinal sounds abnormal [Not Recovered/Not Resolved]
  - Device issue [Unknown]

NARRATIVE: CASE EVENT DATE: 20230101
